FAERS Safety Report 12067176 (Version 1)
Quarter: 2016Q1

REPORT INFORMATION
  Report Type: Spontaneous
  Country: US (occurrence: None)
  Receive Date: 20160210
  Receipt Date: 20160210
  Transmission Date: 20160526
  Serious: No
  Sender: FDA-Public Use
  Company Number: None

PATIENT
  Age: 60 Year
  Sex: Female

DRUGS (1)
  1. XELJANZ [Suspect]
     Active Substance: TOFACITINIB CITRATE
     Indication: RHEUMATOID ARTHRITIS
     Dosage: 1 PILL QD ORAL
     Route: 048
     Dates: start: 20160119, end: 20160209

REACTIONS (4)
  - Myalgia [None]
  - Arthralgia [None]
  - Joint swelling [None]
  - Tendon pain [None]

NARRATIVE: CASE EVENT DATE: 20160209
